FAERS Safety Report 4636643-X (Version None)
Quarter: 2005Q2

REPORT INFORMATION
  Report Type: 
  Country: None (occurrence: None)
  Receive Date: 20050328
  Receipt Date: 20041208
  Transmission Date: 20051028
  Serious: No
  Sender: FDA-Public Use
  Company Number: USA041285670

PATIENT
  Age: 34 Year
  Sex: Male

DRUGS (3)
  1. STRATTERA [Suspect]
     Indication: ATTENTION DEFICIT/HYPERACTIVITY DISORDER
     Dosage: 40 MG DAY
     Dates: start: 20041101
  2. FLONASE [Concomitant]
  3. DOXYCYCLINE [Concomitant]

REACTIONS (2)
  - PROSTATIC PAIN [None]
  - SEXUAL DYSFUNCTION [None]
